FAERS Safety Report 7645888-6 (Version None)
Quarter: 2011Q3

REPORT INFORMATION
  Report Type: 
  Country: None (occurrence: None)
  Receive Date: 20110729
  Receipt Date: 20110720
  Transmission Date: 20111222
  Serious: Yes (Other)
  Sender: FDA-Public Use
  Company Number: US-ASTRAZENECA-2011SE43848

PATIENT
  Sex: Female

DRUGS (15)
  1. NEXIUM [Suspect]
     Route: 048
  2. TYLENOL-500 [Concomitant]
  3. MIRTAZAPINE [Concomitant]
  4. FERROUS SULFATE TAB [Concomitant]
  5. SEROQUEL [Suspect]
     Route: 048
  6. LEVOTHYROXINE SODIUM [Concomitant]
  7. LORAZEPAM [Concomitant]
     Dosage: 1 IN AM AND 1/2 IN AFTERNOON AND 1/2 AT NIGHT
  8. CALCIUM CARBONATE [Concomitant]
  9. OMEPRAZOLE [Concomitant]
     Route: 048
  10. INSULIN [Concomitant]
  11. LISINOPRIL [Concomitant]
  12. LITHIUM CARBONATE [Concomitant]
  13. FAMOTIDINE [Concomitant]
     Route: 048
  14. CYCLOBENZAPRINE HCL [Concomitant]
  15. ASCORBIC ACID [Concomitant]

REACTIONS (30)
  - RENAL FAILURE CHRONIC [None]
  - HYPERTENSIVE NEPHROPATHY [None]
  - HYPOTHYROIDISM [None]
  - BIPOLAR DISORDER [None]
  - OSTEOPOROSIS [None]
  - HEPATIC STEATOSIS [None]
  - DIABETIC NEUROPATHY [None]
  - OBESITY [None]
  - GASTROOESOPHAGEAL REFLUX DISEASE [None]
  - EROSIVE OESOPHAGITIS [None]
  - TRANSIENT ISCHAEMIC ATTACK [None]
  - TYPE 2 DIABETES MELLITUS [None]
  - HYPERLIPIDAEMIA [None]
  - GASTRIC ULCER HAEMORRHAGE [None]
  - CAROTID ARTERY OCCLUSION [None]
  - CHRONIC OBSTRUCTIVE PULMONARY DISEASE [None]
  - GASTRITIS [None]
  - SKIN LESION [None]
  - BONE LESION [None]
  - ANAEMIA [None]
  - DEPRESSION [None]
  - DEEP VEIN THROMBOSIS [None]
  - DIABETIC RETINOPATHY [None]
  - ANXIETY DISORDER [None]
  - SEBORRHOEIC KERATOSIS [None]
  - INAPPROPRIATE SCHEDULE OF DRUG ADMINISTRATION [None]
  - NEPHROSCLEROSIS [None]
  - HEPATITIS C [None]
  - HYPERTENSION [None]
  - RENAL CYST [None]
